FAERS Safety Report 8677350 (Version 3)
Quarter: 2013Q2

REPORT INFORMATION
  Report Type: Report from Study
  Country: US (occurrence: US)
  Receive Date: 20120723
  Receipt Date: 20130513
  Transmission Date: 20140414
  Serious: Yes (Other)
  Sender: FDA-Public Use
  Company Number: US-GENZYME-LEUK-1000246

PATIENT
  Age: 71 Year
  Sex: Male
  Weight: 74 kg

DRUGS (5)
  1. LEUKINE [Suspect]
     Indication: MALIGNANT MELANOMA
     Dosage: 250 MCG, QD DAYS 1-14, CYCLE 3
     Route: 058
     Dates: start: 20110422
  2. LEUKINE [Suspect]
     Dosage: 250 MCG, QD DAYS 1-14
     Route: 058
     Dates: start: 20110916, end: 20110929
  3. LEUKINE [Suspect]
     Dosage: 250 MCG, UNK
     Route: 058
     Dates: end: 20110817
  4. IPILIMUMAB [Suspect]
     Indication: MALIGNANT MELANOMA
     Dosage: 10 MG/KG OVER 90 MIN Q12 WEEKS
     Route: 042
     Dates: start: 20110422
  5. IPILIMUMAB [Suspect]
     Dosage: 10 MG/KG OVER 90 MIN Q12 WEEKS
     Route: 058
     Dates: start: 20110916, end: 20110916

REACTIONS (8)
  - Colitis ulcerative [Recovered/Resolved]
  - Colitis ulcerative [Not Recovered/Not Resolved]
  - Dehydration [Recovered/Resolved]
  - Dehydration [Recovered/Resolved]
  - Muscular weakness [Recovered/Resolved]
  - Diarrhoea [Recovered/Resolved]
  - Weight decreased [Recovered/Resolved]
  - Weight decreased [Not Recovered/Not Resolved]
